FAERS Safety Report 24407516 (Version 2)
Quarter: 2024Q4

REPORT INFORMATION
  Report Type: Spontaneous
  Country: US (occurrence: US)
  Receive Date: 20241007
  Receipt Date: 20241007
  Transmission Date: 20250114
  Serious: Yes (Death, Life-Threatening, Hospitalization, Other)
  Sender: AMGEN
  Company Number: US-AMGEN-USASP2024193730

PATIENT
  Age: 33 Year
  Sex: Male

DRUGS (5)
  1. PREDNISONE [Suspect]
     Active Substance: PREDNISONE
     Indication: Immunosuppressant drug therapy
     Dosage: UNK
     Route: 065
  2. FILGRASTIM [Suspect]
     Active Substance: FILGRASTIM
     Indication: Neutropenic sepsis
     Dosage: UNK
     Route: 065
  3. RITUXIMAB [Suspect]
     Active Substance: RITUXIMAB
     Indication: Transplant rejection
     Dosage: 2 DOSES GIVEN 2 WEEKS APART
     Route: 065
  4. TACROLIMUS [Concomitant]
     Active Substance: TACROLIMUS
     Dosage: GOAL LEVEL 12-14 NG/ML
  5. MYCOPHENOLATE MOFETIL [Concomitant]
     Active Substance: MYCOPHENOLATE MOFETIL

REACTIONS (11)
  - Death [Fatal]
  - Kaposi^s sarcoma [Unknown]
  - Implant site dehiscence [Unknown]
  - Complications of transplanted lung [Not Recovered/Not Resolved]
  - Transplant rejection [Recovered/Resolved]
  - Myelosuppression [Unknown]
  - Neutropenic sepsis [Unknown]
  - Febrile neutropenia [Unknown]
  - General physical health deterioration [Unknown]
  - Drug ineffective for unapproved indication [Unknown]
  - Off label use [Unknown]
